FAERS Safety Report 6492975-4 (Version None)
Quarter: 2009Q4

REPORT INFORMATION
  Report Type: 
  Country: None (occurrence: None)
  Receive Date: 20091211
  Receipt Date: 20091211
  Transmission Date: 20100525
  Serious: Yes (Hospitalization)
  Sender: FDA-Public Use
  Company Number: None

PATIENT
  Age: 61 Year
  Sex: Male

DRUGS (2)
  1. TERAZOSIN HCL [Suspect]
     Dosage: 2 MG BID PO
     Route: 048
     Dates: start: 20090605, end: 20090703
  2. ATENOLOL [Suspect]
     Dosage: 25 MG EVERY DAY PO
     Route: 048
     Dates: start: 20080624, end: 20090627

REACTIONS (1)
  - BRADYCARDIA [None]
